FAERS Safety Report 9292444 (Version 1)
Quarter: 2013Q2

REPORT INFORMATION
  Report Type: Spontaneous
  Country: US (occurrence: None)
  Receive Date: 20130515
  Receipt Date: 20130515
  Transmission Date: 20140414
  Serious: No
  Sender: FDA-Public Use
  Company Number: None

PATIENT
  Age: 88 Year
  Sex: Female

DRUGS (2)
  1. NITROFURANTOIN [Suspect]
     Dates: start: 20110120, end: 20110127
  2. TRIMETHOPRIM-SULFAMETHOXAZOLE [Suspect]
     Dates: start: 20110208, end: 20110211

REACTIONS (1)
  - Liver injury [None]
